FAERS Safety Report 7784419-7 (Version None)
Quarter: 2011Q3

REPORT INFORMATION
  Report Type: 
  Country: None (occurrence: None)
  Receive Date: 20110928
  Receipt Date: 20110922
  Transmission Date: 20111222
  Serious: Yes (Hospitalization, Other)
  Sender: FDA-Public Use
  Company Number: BR-ABBOTT-10P-020-0692614-00

PATIENT
  Sex: Male
  Weight: 73 kg

DRUGS (5)
  1. HUMIRA [Suspect]
     Indication: ANKYLOSING SPONDYLITIS
     Route: 058
     Dates: start: 20100901
  2. ALUDOPRINA [Suspect]
     Indication: HYPOTENSION
     Route: 048
  3. HUMIRA [Suspect]
  4. HYDRALAZINE HCL [Concomitant]
     Indication: HYPOTENSION
     Route: 048
  5. ALL OTHER THERAPEUTIC PRODUCTS [Suspect]
     Indication: PULMONARY OEDEMA
     Route: 042

REACTIONS (9)
  - LUNG DISORDER [None]
  - DYSPHONIA [None]
  - DYSPNOEA [None]
  - HYPERSENSITIVITY [None]
  - RASH PAPULAR [None]
  - PULMONARY OEDEMA [None]
  - NASOPHARYNGITIS [None]
  - INJECTION SITE PAIN [None]
  - ACUTE SINUSITIS [None]
